FAERS Safety Report 10724157 (Version 1)
Quarter: 2015Q1

REPORT INFORMATION
  Report Type: Spontaneous
  Country: US (occurrence: None)
  Receive Date: 20150116
  Receipt Date: 20150116
  Transmission Date: 20150721
  Serious: Yes (Life-Threatening)
  Sender: FDA-Public Use
  Company Number: None

PATIENT
  Age: 54 Year
  Sex: Female
  Weight: 83.92 kg

DRUGS (1)
  1. DILTIAZEM HYDROCHLORIDE. [Suspect]
     Active Substance: DILTIAZEM HYDROCHLORIDE
     Indication: HYPERTENSION
     Dosage: 12/17  1 PILLS ONCE DAILY TAKEN BY MOUTH
     Route: 048

REACTIONS (12)
  - Unevaluable event [None]
  - Blood pressure increased [None]
  - Heart rate increased [None]
  - Chest pain [None]
  - Dyspnoea [None]
  - Eye irritation [None]
  - Hyperhidrosis [None]
  - Swelling face [None]
  - Local swelling [None]
  - Fatigue [None]
  - Ocular hyperaemia [None]
  - Insomnia [None]
